FAERS Safety Report 12693925 (Version 1)
Quarter: 2016Q3

REPORT INFORMATION
  Report Type: Spontaneous
  Country: FR (occurrence: FR)
  Receive Date: 20160829
  Receipt Date: 20160829
  Transmission Date: 20161109
  Serious: Yes (Hospitalization)
  Sender: FDA-Public Use
  Company Number: FR-PFIZER INC-2016397158

PATIENT
  Age: 61 Year
  Sex: Male

DRUGS (26)
  1. GEMZAR [Suspect]
     Active Substance: GEMCITABINE HYDROCHLORIDE
     Dosage: 1800 MG, SINGLE
     Route: 042
     Dates: start: 20150410
  2. TAHOR [Concomitant]
     Active Substance: ATORVASTATIN CALCIUM
     Dosage: 20 MG, 1X/DAY EVENING
     Route: 048
  3. JAMYLENE /00061602/ [Concomitant]
     Dosage: 50 MG, 3X/DAY (MORNING, MIDDAY, EVENING)
     Route: 048
  4. SKENAN [Concomitant]
     Active Substance: MORPHINE SULFATE
     Dosage: SKENAN LP 10 MG 1-0-1
     Route: 048
  5. DOMPERIDONE [Concomitant]
     Active Substance: DOMPERIDONE
     Indication: NAUSEA
     Dosage: 1 DF, AS NEEDED
     Route: 048
  6. EDUCTYL [Concomitant]
     Active Substance: POTASSIUM BITARTRATE\SODIUM BICARBONATE
     Dosage: UNK
  7. SOLUPRED /00016201/ [Concomitant]
     Active Substance: PREDNISOLONE
     Dosage: 20 MG, DAILY (MORNING AND EVENING)
     Route: 048
  8. SPASFON /00765801/ [Concomitant]
     Active Substance: PHLOROGLUCINOL\1,3,5-TRIMETHOXYBENZENE
     Indication: PAIN
     Dosage: 1 DF, AS NEEDED
     Route: 048
  9. NORMACOL /00086101/ [Concomitant]
     Active Substance: SULFAMETHOXAZOLE\TRIMETHOPRIM
     Indication: CONSTIPATION
     Dosage: UNK, AS NEEDED
  10. LANSOYL [Concomitant]
     Active Substance: MINERAL OIL
     Dosage: UNK
  11. DAFALGAN [Concomitant]
     Active Substance: ACETAMINOPHEN
     Indication: PAIN
     Dosage: 1 DF, AS NEEDED
     Route: 048
  12. SEVREDOL [Concomitant]
     Active Substance: MORPHINE
     Indication: PAIN
     Dosage: 1 DF, AS NEEDED
     Route: 048
  13. BIOCIDAN [Concomitant]
     Dosage: UNK
  14. EUPANTOL [Concomitant]
     Active Substance: PANTOPRAZOLE SODIUM
     Dosage: 40 MG, 1X/DAY
     Route: 048
  15. EZETROL [Concomitant]
     Active Substance: EZETIMIBE
     Dosage: 10 MG, 1X/DAY (EVENING)
     Route: 048
  16. ISOPTINE [Concomitant]
     Active Substance: VERAPAMIL HYDROCHLORIDE
     Dosage: 240 MG, 1X/DAY (MORNING)
     Route: 048
  17. KALEORID LP [Concomitant]
     Active Substance: POTASSIUM CHLORIDE
     Dosage: 1000 MG, 2X/DAY (MORNING, EVENING)
     Route: 048
  18. SKENAN [Concomitant]
     Active Substance: MORPHINE SULFATE
     Dosage: SKENAN LP 60 MG 1-0-1
     Route: 048
  19. SEREVENT DISKUS [Concomitant]
     Active Substance: SALMETEROL XINAFOATE
     Dosage: UNK
  20. CARBOPLATINE HOSPIRA [Suspect]
     Active Substance: CARBOPLATIN
     Indication: BRONCHIAL CARCINOMA
     Dosage: 775 MG, SINGLE
     Route: 042
     Dates: start: 20150403, end: 20150403
  21. GEMZAR [Suspect]
     Active Substance: GEMCITABINE HYDROCHLORIDE
     Indication: BRONCHIAL CARCINOMA
     Dosage: 1810 MG, SINGLE
     Route: 042
     Dates: start: 20150403
  22. ALPRAZOLAM. [Concomitant]
     Active Substance: ALPRAZOLAM
     Dosage: 0.25 MG, 3X/DAY (MORNING, MIDDAY, EVENING)
     Route: 048
  23. CETIRIZINE DIHCL [Concomitant]
     Active Substance: CETIRIZINE HYDROCHLORIDE
     Dosage: 0.5 DF, 1X/DAY (EVENING)
     Route: 048
  24. TRANSIPEG /00754501/ [Concomitant]
     Active Substance: POLYETHYLENE GLYCOL 3350
     Dosage: 5.9 G, 2X/DAY (MORNING AND MIDDAY)
     Route: 048
  25. SEROPLEX [Concomitant]
     Active Substance: ESCITALOPRAM OXALATE
     Dosage: 5 MG, 1X/DAY (MORNING)
     Route: 048
  26. SKENAN [Concomitant]
     Active Substance: MORPHINE SULFATE
     Dosage: SKENAN LP 100 MG 1-0-1
     Route: 048

REACTIONS (3)
  - Anaemia [Recovered/Resolved]
  - Haemoptysis [Recovered/Resolved]
  - Thrombocytopenia [Recovered/Resolved]

NARRATIVE: CASE EVENT DATE: 20150415
